FAERS Safety Report 5916007-9 (Version None)
Quarter: 2008Q4

REPORT INFORMATION
  Report Type: 
  Country: None (occurrence: None)
  Receive Date: 20081013
  Receipt Date: 20081002
  Transmission Date: 20090506
  Serious: Yes (Hospitalization)
  Sender: FDA-Public Use
  Company Number: JP-JNJFOC-20081001282

PATIENT
  Age: 57 Year
  Sex: Female

DRUGS (14)
  1. RISPERDAL [Suspect]
     Indication: DRUG USE FOR UNKNOWN INDICATION
     Route: 048
  2. MERCAZOLE [Concomitant]
     Route: 048
  3. AMLODIPINE [Concomitant]
     Route: 048
  4. NULOTAN [Concomitant]
     Route: 048
  5. BRECRUS [Concomitant]
     Route: 048
  6. ALLELOCK [Concomitant]
     Route: 048
  7. EPADEL S [Concomitant]
     Route: 048
  8. PRAVASTATIN SODIUM [Concomitant]
     Route: 048
  9. ACTOS [Concomitant]
     Route: 048
  10. TATHION [Concomitant]
     Route: 048
  11. BENZALIN [Concomitant]
     Route: 048
  12. BASEN [Concomitant]
     Route: 048
  13. LASIX [Concomitant]
     Route: 048
  14. ASPARA POTASSIUM [Concomitant]
     Route: 065

REACTIONS (2)
  - HYPOKALAEMIA [None]
  - MYOPATHY [None]
